FAERS Safety Report 6635640-2 (Version None)
Quarter: 2010Q1

REPORT INFORMATION
  Report Type: 
  Country: None (occurrence: None)
  Receive Date: 20100312
  Receipt Date: 20100312
  Transmission Date: 20100710
  Serious: Yes (Hospitalization)
  Sender: FDA-Public Use
  Company Number: None

PATIENT
  Age: 80 Year
  Sex: Male
  Weight: 101 kg

DRUGS (1)
  1. WARFARIN [Suspect]
     Dates: start: 20010829

REACTIONS (7)
  - CHEST PAIN [None]
  - DYSPNOEA [None]
  - FAECES DISCOLOURED [None]
  - GASTRIC HAEMORRHAGE [None]
  - HAEMOGLOBIN DECREASED [None]
  - HEPATIC ENZYME INCREASED [None]
  - INTERNATIONAL NORMALISED RATIO INCREASED [None]
